FAERS Safety Report 23218668 (Version 1)
Quarter: 2023Q4

REPORT INFORMATION
  Report Type: Spontaneous
  Country: US (occurrence: None)
  Receive Date: 20231122
  Receipt Date: 20231122
  Transmission Date: 20240110
  Serious: Yes (Other)
  Sender: FDA-Public Use
  Company Number: US-ROCHE-3457333

PATIENT
  Sex: Female
  Weight: 58.112 kg

DRUGS (5)
  1. ACTEMRA [Suspect]
     Active Substance: TOCILIZUMAB
     Indication: Giant cell arteritis
     Route: 058
     Dates: start: 202302
  2. ACTEMRA [Suspect]
     Active Substance: TOCILIZUMAB
  3. ACTEMRA [Suspect]
     Active Substance: TOCILIZUMAB
  4. PREDNISONE [Concomitant]
     Active Substance: PREDNISONE
     Indication: Giant cell arteritis
     Dates: start: 20221203, end: 20231006
  5. METHOTREXATE [Concomitant]
     Active Substance: METHOTREXATE
     Indication: Giant cell arteritis
     Route: 048
     Dates: start: 202304

REACTIONS (7)
  - Headache [Unknown]
  - Fatigue [Recovered/Resolved]
  - Illness [Unknown]
  - Drug ineffective [Unknown]
  - Fall [Unknown]
  - Adrenal disorder [Recovered/Resolved]
  - Angioedema [Unknown]
